FAERS Safety Report 18604550 (Version 1)
Quarter: 2020Q4

REPORT INFORMATION
  Report Type: Spontaneous
  Country: CN (occurrence: CN)
  Receive Date: 20201211
  Receipt Date: 20201211
  Transmission Date: 20210114
  Serious: Yes (Hospitalization, Other)
  Sender: FDA-Public Use
  Company Number: CN-ACCORD-203470

PATIENT
  Age: 24 Year
  Sex: Male
  Weight: 52.2 kg

DRUGS (6)
  1. TACROLIMUS. [Suspect]
     Active Substance: TACROLIMUS
     Indication: IMMUNOSUPPRESSION
     Dosage: STARTING ON DAY 3 POST-TRANSPLANT, 0.5 MG FROM NOV-2018 TO NOV-2018 ORAL,
     Dates: start: 2018, end: 201901
  2. TIGECYCLINE. [Interacting]
     Active Substance: TIGECYCLINE
     Indication: ENTEROCOCCAL INFECTION
     Dosage: AT 100 MG EVERY 12 HOURS
     Route: 042
     Dates: start: 201811, end: 201811
  3. MYCOPHENOLIC ACID. [Concomitant]
     Active Substance: MYCOPHENOLIC ACID
     Indication: IMMUNOSUPPRESSION
     Dosage: SMALL DOSES ENTERIC-COATED
     Dates: start: 201811, end: 201812
  4. MEROPENEM. [Concomitant]
     Active Substance: MEROPENEM
     Indication: PROPHYLAXIS
     Dates: start: 201811
  5. CASPOFUNGIN [Concomitant]
     Active Substance: CASPOFUNGIN
     Indication: PROPHYLAXIS
     Dates: start: 201811
  6. METHYLPREDNISOLONE. [Concomitant]
     Active Substance: METHYLPREDNISOLONE
     Indication: IMMUNOSUPPRESSANT DRUG THERAPY
     Dates: start: 201811

REACTIONS (5)
  - Pancreatitis acute [Recovered/Resolved]
  - Parvovirus B19 infection [Not Recovered/Not Resolved]
  - Drug interaction [Unknown]
  - Immunosuppressant drug level increased [Recovering/Resolving]
  - Cytomegalovirus infection [Recovered/Resolved]

NARRATIVE: CASE EVENT DATE: 201811
